FAERS Safety Report 9713875 (Version 2)
Quarter: 2014Q1

REPORT INFORMATION
  Report Type: Spontaneous
  Country: US (occurrence: US)
  Receive Date: 20131126
  Receipt Date: 20140203
  Transmission Date: 20141002
  Serious: Yes (Other)
  Sender: FDA-Public Use
  Company Number: US-GILEAD-2013-0088289

PATIENT
  Age: 80 Year
  Sex: Male

DRUGS (1)
  1. RANEXA [Suspect]
     Indication: ANGINA PECTORIS
     Dosage: 500 MG, UNK
     Route: 048

REACTIONS (2)
  - Cerebrovascular accident [Unknown]
  - Dementia [Unknown]
